FAERS Safety Report 15158400 (Version 1)
Quarter: 2018Q3

REPORT INFORMATION
  Report Type: Spontaneous
  Country: ES (occurrence: ES)
  Receive Date: 20180718
  Receipt Date: 20180718
  Transmission Date: 20181010
  Serious: Yes (Other)
  Sender: FDA-Public Use
  Company Number: ES-MYLANLABS-2018M1051281

PATIENT
  Age: 11 Year
  Sex: Male
  Weight: 38 kg

DRUGS (1)
  1. DALSY 20 MG/ML SUSPENSI?N ORAL [Suspect]
     Active Substance: IBUPROFEN
     Indication: PYREXIA
     Dosage: ENTRE 5 Y 10 ML CADA 8 HORAS(BETWEEN 5 AND 10 ML EVERY 8 HOURS)
     Route: 048
     Dates: start: 20180402, end: 20180404

REACTIONS (2)
  - Nervousness [Recovered/Resolved]
  - Delirium [Recovered/Resolved]

NARRATIVE: CASE EVENT DATE: 20180403
